FAERS Safety Report 22586489 (Version 1)
Quarter: 2023Q2

REPORT INFORMATION
  Report Type: Spontaneous
  Country: US (occurrence: US)
  Receive Date: 20230611
  Receipt Date: 20230611
  Transmission Date: 20230721
  Serious: No
  Sender: FDA-Public Use
  Company Number: US-PERRIGO-22US014307

PATIENT
  Age: 42 Year
  Sex: Female
  Weight: 79.365 kg

DRUGS (1)
  1. DICLOFENAC SODIUM [Suspect]
     Active Substance: DICLOFENAC SODIUM
     Indication: Tendonitis
     Dosage: 2 G, 4 TO 5 TIMES DAILY
     Route: 061
     Dates: start: 20221024, end: 20221026

REACTIONS (1)
  - Drug ineffective for unapproved indication [Unknown]

NARRATIVE: CASE EVENT DATE: 20221024
